FAERS Safety Report 19218258 (Version 1)
Quarter: 2021Q2

REPORT INFORMATION
  Report Type: Spontaneous
  Country: US (occurrence: US)
  Receive Date: 20210502
  Receipt Date: 20210502
  Transmission Date: 20210717
  Serious: No
  Sender: FDA-Public Use
  Company Number: US-ELI_LILLY_AND_COMPANY-US202104012864

PATIENT
  Age: 60 Year
  Sex: Female

DRUGS (1)
  1. HUMALOG [Suspect]
     Active Substance: INSULIN LISPRO
     Indication: TYPE 1 DIABETES MELLITUS
     Dosage: UNK UNK, UNKNOWN
     Route: 065

REACTIONS (5)
  - Injection site haemorrhage [Unknown]
  - Blood glucose increased [Unknown]
  - Injection site swelling [Unknown]
  - Injection site pain [Unknown]
  - Injection site infection [Unknown]

NARRATIVE: CASE EVENT DATE: 20210421
